APPROVED DRUG PRODUCT: NITROGLYCERIN IN DEXTROSE 5%
Active Ingredient: NITROGLYCERIN
Strength: 10MG/100ML
Dosage Form/Route: INJECTABLE;INJECTION
Application: N019970 | Product #001
Applicant: BAXTER HEALTHCARE CORP
Approved: Dec 29, 1989 | RLD: Yes | RS: Yes | Type: RX